FAERS Safety Report 5716285-5 (Version None)
Quarter: 2008Q2

REPORT INFORMATION
  Report Type: 
  Country: None (occurrence: None)
  Receive Date: 20080424
  Receipt Date: 20080414
  Transmission Date: 20081010
  Serious: Yes (Hospitalization)
  Sender: FDA-Public Use
  Company Number: B0516962A

PATIENT
  Age: 63 Year
  Sex: Female

DRUGS (2)
  1. HYCAMTIN [Suspect]
     Indication: OVARIAN CANCER
     Dosage: 3MGM2 PER DAY
     Route: 042
     Dates: start: 20070703
  2. PACLITAXEL [Suspect]
     Indication: OVARIAN CANCER
     Dosage: 80MGM2 PER DAY
     Route: 042
     Dates: start: 20070703

REACTIONS (7)
  - ANAEMIA [None]
  - CHEST PAIN [None]
  - ESCHERICHIA URINARY TRACT INFECTION [None]
  - GENERAL SYMPTOM [None]
  - LUNG DISORDER [None]
  - PYREXIA [None]
  - WHEEZING [None]
